FAERS Safety Report 21136920 (Version 1)
Quarter: 2022Q3

REPORT INFORMATION
  Report Type: Spontaneous
  Country: US (occurrence: US)
  Receive Date: 20220727
  Receipt Date: 20220727
  Transmission Date: 20221027
  Serious: No
  Sender: FDA-Public Use
  Company Number: US-BAYER-2022A105321

PATIENT
  Age: 83 Year
  Sex: Male

DRUGS (5)
  1. MIRALAX [Suspect]
     Active Substance: POLYETHYLENE GLYCOL 3350
     Indication: Constipation
     Dosage: UNK
     Route: 048
     Dates: start: 20220725
  2. MIRALAX [Suspect]
     Active Substance: POLYETHYLENE GLYCOL 3350
     Indication: Constipation
     Dosage: HALF OF THE WHITE CAP
     Route: 048
  3. FINASTERIDE [Suspect]
     Active Substance: FINASTERIDE
     Indication: Pain
     Dosage: 5MG X 2 A DAY,0.4MG X 1 A DAY
     Route: 048
  4. LISINOPRIL [Concomitant]
     Active Substance: LISINOPRIL
     Indication: Prophylaxis
     Dosage: 40MG X 1 A DAY
     Route: 048
  5. LEVETIRACETAM [Concomitant]
     Active Substance: LEVETIRACETAM
     Indication: Prophylaxis
     Dosage: UNK
     Route: 048

REACTIONS (1)
  - Incorrect dose administered [Recovering/Resolving]
